FAERS Safety Report 7764738-0 (Version None)
Quarter: 2011Q3

REPORT INFORMATION
  Report Type: 
  Country: None (occurrence: None)
  Receive Date: 20110921
  Receipt Date: 20110921
  Transmission Date: 20111222
  Serious: Yes (Other)
  Sender: FDA-Public Use
  Company Number: None

PATIENT
  Sex: Female
  Weight: 58.5 kg

DRUGS (1)
  1. CARBOPLATIN [Suspect]
     Dosage: 260
     Route: 042

REACTIONS (1)
  - DRUG HYPERSENSITIVITY [None]
